FAERS Safety Report 12769266 (Version 1)
Quarter: 2016Q3

REPORT INFORMATION
  Report Type: Spontaneous
  Country: FR (occurrence: FR)
  Receive Date: 20160921
  Receipt Date: 20160921
  Transmission Date: 20161109
  Serious: Yes (Life-Threatening, Disabling)
  Sender: FDA-Public Use
  Company Number: FR-ABBVIE-16P-056-1734363-00

PATIENT
  Age: 9 Year
  Sex: Male
  Weight: 32 kg

DRUGS (10)
  1. CIFLOX [Suspect]
     Active Substance: CIPROFLOXACIN
     Indication: PRODUCT USED FOR UNKNOWN INDICATION
     Route: 042
     Dates: start: 20160627, end: 20160703
  2. FORTUM [Suspect]
     Active Substance: CEFTAZIDIME
     Route: 042
     Dates: start: 20160717, end: 20160718
  3. DOLIPRANE [Suspect]
     Active Substance: ACETAMINOPHEN
     Indication: PRODUCT USED FOR UNKNOWN INDICATION
     Route: 048
     Dates: start: 20160624, end: 20160625
  4. ZECLAR [Suspect]
     Active Substance: CLARITHROMYCIN
     Indication: PRODUCT USED FOR UNKNOWN INDICATION
     Route: 065
     Dates: end: 20160711
  5. FORTUM [Suspect]
     Active Substance: CEFTAZIDIME
     Indication: PRODUCT USED FOR UNKNOWN INDICATION
     Route: 042
     Dates: start: 20160710, end: 20160715
  6. AUGMENTIN [Suspect]
     Active Substance: AMOXICILLIN\CLAVULANATE POTASSIUM
     Indication: PRODUCT USED FOR UNKNOWN INDICATION
     Route: 042
     Dates: start: 20160626, end: 20160628
  7. TAZOCILLINE [Suspect]
     Active Substance: PIPERACILLIN SODIUM\TAZOBACTAM SODIUM
     Indication: PRODUCT USED FOR UNKNOWN INDICATION
     Route: 042
     Dates: start: 20160629, end: 20160703
  8. REMICADE [Suspect]
     Active Substance: INFLIXIMAB
     Indication: PRODUCT USED FOR UNKNOWN INDICATION
     Route: 065
     Dates: start: 20160628, end: 20160628
  9. PERFALGAN [Suspect]
     Active Substance: ACETAMINOPHEN
     Indication: PRODUCT USED FOR UNKNOWN INDICATION
     Route: 042
     Dates: start: 20160626, end: 20160630
  10. VANCOMYCINE [Suspect]
     Active Substance: VANCOMYCIN
     Indication: PRODUCT USED FOR UNKNOWN INDICATION
     Route: 065
     Dates: start: 20160707, end: 20160725

REACTIONS (5)
  - Eosinophilia [Recovered/Resolved]
  - Cell death [Recovered/Resolved with Sequelae]
  - Cholestasis [Recovered/Resolved with Sequelae]
  - Hyperbilirubinaemia [Recovered/Resolved with Sequelae]
  - Prothrombin time shortened [Recovered/Resolved]

NARRATIVE: CASE EVENT DATE: 201606
